FAERS Safety Report 4808239-8 (Version None)
Quarter: 2005Q4

REPORT INFORMATION
  Report Type: 
  Country: None (occurrence: None)
  Receive Date: 20051021
  Receipt Date: 20051005
  Transmission Date: 20060501
  Serious: Yes (Death)
  Sender: FDA-Public Use
  Company Number: 12670

PATIENT
  Age: 27 Year
  Sex: Female

DRUGS (2)
  1. VINCRISTINE [Suspect]
     Indication: ACUTE LYMPHOCYTIC LEUKAEMIA
     Dosage: 2  MG INVEN
  2. METHOTREXATE [Concomitant]

REACTIONS (9)
  - BRAIN DEATH [None]
  - COMA [None]
  - DRUG ADMINISTRATION ERROR [None]
  - ENCEPHALITIS [None]
  - IATROGENIC INJURY [None]
  - INCORRECT ROUTE OF DRUG ADMINISTRATION [None]
  - NEUROTOXICITY [None]
  - PARALYSIS [None]
  - RESPIRATORY TRACT INFECTION [None]
